FAERS Safety Report 6946181-7 (Version None)
Quarter: 2010Q3

REPORT INFORMATION
  Report Type: 
  Country: None (occurrence: None)
  Receive Date: 20100827
  Receipt Date: 20100820
  Transmission Date: 20110219
  Serious: Yes (Other)
  Sender: FDA-Public Use
  Company Number: SE-AMGEN-QUU429406

PATIENT
  Age: 67 Year
  Sex: Male

DRUGS (1)
  1. ARANESP [Suspect]
     Indication: DIALYSIS
     Route: 042

REACTIONS (3)
  - HAEMORRHAGE [None]
  - NEEDLE ISSUE [None]
  - UNDERDOSE [None]
